FAERS Safety Report 6421579-4 (Version None)
Quarter: 2009Q4

REPORT INFORMATION
  Report Type: 
  Country: None (occurrence: None)
  Receive Date: 20091029
  Receipt Date: 20091029
  Transmission Date: 20100525
  Serious: Yes (Life-Threatening, Hospitalization, Other)
  Sender: FDA-Public Use
  Company Number: None

PATIENT
  Age: 55 Year
  Sex: Male
  Weight: 142.8831 kg

DRUGS (1)
  1. SMOKING EVERYWHERE 16 MG [Suspect]
     Indication: SMOKING CESSATION THERAPY
     Dosage: ABOUT 30 MINUTES
     Dates: start: 20091001, end: 20091012

REACTIONS (3)
  - CEREBRAL HAEMORRHAGE [None]
  - CEREBROVASCULAR ACCIDENT [None]
  - THROMBOSIS [None]
